FAERS Safety Report 19623369 (Version 1)
Quarter: 2021Q3

REPORT INFORMATION
  Report Type: Spontaneous
  Country: FR (occurrence: FR)
  Receive Date: 20210728
  Receipt Date: 20210728
  Transmission Date: 20211014
  Serious: Yes (Life-Threatening)
  Sender: FDA-Public Use
  Company Number: FR-TEVA-2021-FR-1937083

PATIENT
  Age: 65 Year
  Sex: Male

DRUGS (3)
  1. CODEINE [Concomitant]
     Active Substance: CODEINE
     Dosage: UNKNOWN
     Route: 048
     Dates: start: 20210614, end: 20210618
  2. KETOPROFENE [Suspect]
     Active Substance: KETOPROFEN
     Indication: BACK PAIN
     Dosage: 200MG
     Route: 048
     Dates: start: 20210614, end: 20210618
  3. PARACETAMOL [Concomitant]
     Active Substance: ACETAMINOPHEN
     Dosage: UNKNOWN
     Route: 048
     Dates: start: 20210614, end: 20210618

REACTIONS (2)
  - Acute kidney injury [Recovering/Resolving]
  - Hyperkalaemia [Recovered/Resolved]

NARRATIVE: CASE EVENT DATE: 20210630
